FAERS Safety Report 19300115 (Version 1)
Quarter: 2021Q2

REPORT INFORMATION
  Report Type: Spontaneous
  Country: US (occurrence: US)
  Receive Date: 20210524
  Receipt Date: 20210524
  Transmission Date: 20210717
  Serious: Yes (Other)
  Sender: FDA-Public Use
  Company Number: US-ATHENEX PHARMACEUTICAL SOLUTION-2111900

PATIENT

DRUGS (15)
  1. HEPARIN [Concomitant]
     Active Substance: HEPARIN SODIUM
  2. PROPOFOL. [Concomitant]
     Active Substance: PROPOFOL
  3. EPINEPHRINE. [Concomitant]
     Active Substance: EPINEPHRINE
  4. VASOPRESSIN. [Concomitant]
     Active Substance: VASOPRESSIN
  5. TICAGRELOR. [Concomitant]
     Active Substance: TICAGRELOR
  6. VANCOMYCIN HYDROCHLORIDE. [Concomitant]
     Active Substance: VANCOMYCIN HYDROCHLORIDE
  7. REGULAR INSULIN [Concomitant]
     Active Substance: INSULIN NOS
  8. CEFEPIME [Concomitant]
     Active Substance: CEFEPIME HYDROCHLORIDE
  9. DOPAMINE [Concomitant]
     Active Substance: DOPAMINE HYDROCHLORIDE
  10. ALBUMIN (HUMAN) [Concomitant]
     Active Substance: ALBUMIN HUMAN
  11. AMIODARONE HYDROCHLORIDE. [Concomitant]
     Active Substance: AMIODARONE HYDROCHLORIDE
  12. NOREPINEPHRINE INJECTION IN 0.9%SOIUM CHLORIDE [Suspect]
     Active Substance: NOREPINEPHRINE
     Indication: ACUTE MYOCARDIAL INFARCTION
     Route: 041
  13. ATORVASTATIN CALCIUM. [Concomitant]
     Active Substance: ATORVASTATIN CALCIUM
  14. CALCIUM CHLORIDE. [Concomitant]
     Active Substance: CALCIUM CHLORIDE
  15. SODIUM BICARBONATE. [Concomitant]
     Active Substance: SODIUM BICARBONATE

REACTIONS (1)
  - Drug ineffective [Unknown]
